FAERS Safety Report 11533571 (Version 1)
Quarter: 2015Q3

REPORT INFORMATION
  Report Type: Spontaneous
  Country: US (occurrence: US)
  Receive Date: 20150921
  Receipt Date: 20150921
  Transmission Date: 20151125
  Serious: Yes (Life-Threatening, Hospitalization)
  Sender: FDA-Public Use
  Company Number: US-SIGMA-TAU US-2015STPI000126

PATIENT
  Age: 49 Year
  Sex: Male
  Weight: 90 kg

DRUGS (18)
  1. VINCRISTINE SULFATE. [Concomitant]
     Active Substance: VINCRISTINE SULFATE
     Indication: LYMPHOMA
     Dosage: 2 MG, X1
     Route: 042
     Dates: start: 20150126, end: 20150126
  2. DECADRON [Concomitant]
     Active Substance: DEXAMETHASONE
     Indication: ANGIOEDEMA
     Dosage: 2 MG, UNK
     Route: 048
  3. VINCRISTINE SULFATE. [Concomitant]
     Active Substance: VINCRISTINE SULFATE
     Dosage: 2 MG, UNK
     Route: 042
     Dates: start: 20150223, end: 20150223
  4. METHOTREXATE SODIUM. [Concomitant]
     Active Substance: METHOTREXATE SODIUM
     Indication: LYMPHOMA
     Dosage: 7315 MG, X1
     Route: 042
     Dates: start: 20150126, end: 20150126
  5. MATULANE [Suspect]
     Active Substance: PROCARBAZINE HYDROCHLORIDE
     Indication: LYMPHOMA
     Dosage: 200 MG, OTHER
     Route: 048
     Dates: start: 20150126, end: 20150202
  6. MATULANE [Suspect]
     Active Substance: PROCARBAZINE HYDROCHLORIDE
     Dosage: 200 MG, X1
     Route: 048
     Dates: start: 20150223, end: 20150223
  7. LEUCOVORIN CALCIUM. [Concomitant]
     Active Substance: LEUCOVORIN CALCIUM
     Dosage: UNK, X1
     Route: 065
     Dates: start: 20150223, end: 20150223
  8. VITAMIN B6 [Concomitant]
     Active Substance: PYRIDOXINE HYDROCHLORIDE
     Indication: PRODUCT USED FOR UNKNOWN INDICATION
     Dosage: 50 MG, UNK
     Route: 048
  9. RITUXAN [Concomitant]
     Active Substance: RITUXIMAB
     Indication: LYMPHOMA
     Dosage: 1045 MG, X1
     Route: 042
     Dates: start: 20150126, end: 20150126
  10. METHOTREXATE SODIUM. [Concomitant]
     Active Substance: METHOTREXATE SODIUM
     Dosage: 7350 MG, X1
     Route: 042
     Dates: start: 20150209, end: 20150209
  11. LEUCOVORIN CALCIUM. [Concomitant]
     Active Substance: LEUCOVORIN CALCIUM
     Dosage: UNK, X1
     Route: 065
     Dates: start: 20150209, end: 20150209
  12. KEPPRA [Concomitant]
     Active Substance: LEVETIRACETAM
     Indication: SEIZURE
     Dosage: 500 MG, UNK
     Route: 048
  13. RITUXAN [Concomitant]
     Active Substance: RITUXIMAB
     Dosage: 1050 UNK, UNK
     Route: 042
     Dates: start: 20150209, end: 20150209
  14. RITUXAN [Concomitant]
     Active Substance: RITUXIMAB
     Dosage: 1050 UNK, UNK
     Route: 042
     Dates: start: 20150223, end: 20150223
  15. METHOTREXATE SODIUM. [Concomitant]
     Active Substance: METHOTREXATE SODIUM
     Dosage: 7350 UNK, UNK
     Route: 042
     Dates: start: 20150223, end: 20150223
  16. VINCRISTINE SULFATE. [Concomitant]
     Active Substance: VINCRISTINE SULFATE
     Dosage: 2 MG, X1
     Route: 042
     Dates: start: 20150209, end: 20150209
  17. LEUCOVORIN CALCIUM. [Concomitant]
     Active Substance: LEUCOVORIN CALCIUM
     Indication: PROPHYLAXIS
     Dosage: UNK, OTHER
     Route: 065
     Dates: start: 20150126, end: 20150126
  18. INH [Concomitant]
     Active Substance: ISONIAZID
     Indication: TUBERCULOSIS
     Dosage: 300 MG, UNK
     Route: 048

REACTIONS (1)
  - Generalised tonic-clonic seizure [Recovered/Resolved]

NARRATIVE: CASE EVENT DATE: 20150223
